FAERS Safety Report 23825442 (Version 9)
Quarter: 2025Q4

REPORT INFORMATION
  Report Type: Report from Study
  Country: US (occurrence: None)
  Receive Date: 20240507
  Receipt Date: 20251222
  Transmission Date: 20260117
  Serious: Yes (Hospitalization, Other)
  Sender: UCB
  Company Number: US-UCBSA-2024021992

PATIENT
  Weight: 22.2 kg

DRUGS (7)
  1. FENFLURAMINE [Suspect]
     Active Substance: FENFLURAMINE
     Indication: Severe myoclonic epilepsy of infancy
     Dosage: 3.4 MILLILITER, 2X/DAY (BID)
  2. FENFLURAMINE [Suspect]
     Active Substance: FENFLURAMINE
     Indication: Seizure
     Dosage: 3.4 MILLILITER, 2X/DAY (BID)
     Route: 061
  3. FENFLURAMINE [Suspect]
     Active Substance: FENFLURAMINE
     Dosage: 3.4 MILLILITER, 2X/DAY (BID)
  4. FENFLURAMINE [Suspect]
     Active Substance: FENFLURAMINE
     Dosage: 0.6 MILLIGRAM/KILOGRAM/DAY TOTALLY 4.96 MILLIGRAM PER DAY.
  5. FENFLURAMINE [Suspect]
     Active Substance: FENFLURAMINE
     Dosage: 0.67 MG/KG/DAY
  6. FENFLURAMINE [Suspect]
     Active Substance: FENFLURAMINE
     Dosage: 3.4 MILLILITER, 2X/DAY (BID)
  7. VALPROIC ACID [Suspect]
     Active Substance: VALPROIC ACID
     Indication: Seizure
     Dosage: 3 MILLILITER, 2X/DAY (BID)

REACTIONS (5)
  - Seizure [Recovering/Resolving]
  - Pericardial effusion [Recovered/Resolved]
  - Blood pressure decreased [Unknown]
  - Somnolence [Not Recovered/Not Resolved]
  - Therapeutic response decreased [Unknown]
